FAERS Safety Report 10572846 (Version 1)
Quarter: 2014Q4

REPORT INFORMATION
  Report Type: Spontaneous
  Country: FR (occurrence: FR)
  Receive Date: 20141110
  Receipt Date: 20141110
  Transmission Date: 20150529
  Serious: Yes (Other)
  Sender: FDA-Public Use
  Company Number: FR-MERCK-1411FRA002862

PATIENT
  Age: 32 Year
  Sex: Female

DRUGS (1)
  1. STROMECTOL [Suspect]
     Active Substance: IVERMECTIN
     Indication: ACARODERMATITIS
     Dosage: 8 DF, ONCE
     Route: 048
     Dates: start: 20140925, end: 20140925

REACTIONS (4)
  - Mucosal dryness [Unknown]
  - Tremor [Unknown]
  - Abdominal pain lower [Unknown]
  - Dizziness [Unknown]

NARRATIVE: CASE EVENT DATE: 20140925
